FAERS Safety Report 5125823-5 (Version None)
Quarter: 2006Q4

REPORT INFORMATION
  Report Type: 
  Country: None (occurrence: None)
  Receive Date: 20061012
  Receipt Date: 20061002
  Transmission Date: 20070319
  Serious: Yes (Death, Other)
  Sender: FDA-Public Use
  Company Number: GB-ABBOTT-06P-167-0345760-00

PATIENT
  Age: 21 Year
  Sex: Male

DRUGS (8)
  1. VALPROATE SODIUM [Suspect]
     Indication: BIPOLAR I DISORDER
     Route: 065
     Dates: start: 20020314
  2. LITHIUM CITRATE [Suspect]
     Indication: BIPOLAR DISORDER
     Route: 048
     Dates: start: 19970307
  3. LITHIUM CITRATE [Suspect]
  4. LITHIUM CITRATE [Suspect]
     Dates: end: 20030321
  5. OLANZAPINE [Suspect]
     Indication: BIPOLAR I DISORDER
     Route: 065
     Dates: start: 20040501
  6. DIPROBASE [Concomitant]
     Indication: DRUG USE FOR UNKNOWN INDICATION
     Route: 065
     Dates: start: 20020611
  7. LACTULOSE [Concomitant]
     Indication: DRUG USE FOR UNKNOWN INDICATION
     Route: 065
     Dates: start: 20020521
  8. OILATUM [Concomitant]
     Indication: DRUG USE FOR UNKNOWN INDICATION
     Route: 065
     Dates: start: 19970601

REACTIONS (5)
  - GLOMERULOSCLEROSIS [None]
  - PERICARDITIS [None]
  - PLEURAL EFFUSION [None]
  - PNEUMONITIS [None]
  - RENAL FAILURE CHRONIC [None]
